FAERS Safety Report 11402876 (Version 1)
Quarter: 2015Q3

REPORT INFORMATION
  Report Type: Spontaneous
  Country: US (occurrence: US)
  Receive Date: 20150821
  Receipt Date: 20150821
  Transmission Date: 20151125
  Serious: No
  Sender: FDA-Public Use
  Company Number: US-ROCHE-1287764

PATIENT
  Sex: Female
  Weight: 48.58 kg

DRUGS (4)
  1. PEGASYS [Suspect]
     Active Substance: PEGINTERFERON ALFA-2A
     Indication: CHRONIC HEPATITIS C
     Route: 058
     Dates: start: 20130920
  2. ALPRAZOLAM. [Concomitant]
     Active Substance: ALPRAZOLAM
     Dosage: 4XDAY AS NEEDED
     Route: 065
  3. RIBAVIRIN. [Suspect]
     Active Substance: RIBAVIRIN
     Indication: CHRONIC HEPATITIS C
     Dosage: 400/600
     Route: 048
     Dates: start: 20130920
  4. VICTRELIS [Suspect]
     Active Substance: BOCEPREVIR
     Indication: CHRONIC HEPATITIS C
     Route: 048
     Dates: start: 20131018

REACTIONS (7)
  - Abdominal distension [Unknown]
  - Abdominal pain upper [Unknown]
  - Anxiety [Unknown]
  - Arthralgia [Unknown]
  - Headache [Unknown]
  - Injection site bruising [Unknown]
  - Weight increased [Unknown]
